FAERS Safety Report 9193465 (Version 1)
Quarter: 2013Q1

REPORT INFORMATION
  Report Type: Spontaneous
  Country: US (occurrence: US)
  Receive Date: 20130327
  Receipt Date: 20130327
  Transmission Date: 20140127
  Serious: Yes (Hospitalization, Disabling)
  Sender: FDA-Public Use
  Company Number: US-PFIZER INC-2005075435

PATIENT
  Age: 69 Year
  Sex: Female
  Weight: 66.23 kg

DRUGS (9)
  1. IBUPROFEN [Suspect]
     Indication: OSTEOARTHRITIS
     Dosage: 800 MG, 3X/DAY
     Route: 048
     Dates: start: 20030731, end: 20030825
  2. ACETAMINOPHEN [Suspect]
     Indication: ARTHRALGIA
     Dosage: 325 MG, 1 IN 1 AS NECESSARY
     Route: 048
     Dates: start: 20030803, end: 20030825
  3. HYDROCHLOROTHIAZIDE [Concomitant]
     Dosage: UNSPECIFIED
     Route: 065
     Dates: start: 200211
  4. XENADRINE RFA-1 [Concomitant]
     Dosage: UNSPECIFIED
     Route: 065
     Dates: start: 20030721
  5. SIMVASTATIN [Concomitant]
     Dosage: UNSPECIFIED
     Route: 065
     Dates: start: 200211
  6. ATENOLOL [Concomitant]
     Dosage: UNSPECIFIED
     Route: 065
     Dates: start: 199812
  7. CALCIUM [Concomitant]
     Dosage: UNSPECIFIED
     Route: 065
     Dates: start: 200304
  8. HYDRODIURIL [Concomitant]
     Dates: start: 200211
  9. ZOCOR [Concomitant]
     Dates: start: 200211

REACTIONS (1)
  - Deep vein thrombosis [Recovered/Resolved]
